FAERS Safety Report 9797993 (Version 1)
Quarter: 2014Q1

REPORT INFORMATION
  Report Type: Spontaneous
  Country: US (occurrence: US)
  Receive Date: 20140106
  Receipt Date: 20140106
  Transmission Date: 20141002
  Serious: No
  Sender: FDA-Public Use
  Company Number: US-009507513-1401USA001135

PATIENT
  Sex: Female

DRUGS (1)
  1. AZASITE [Suspect]
     Indication: GLAUCOMA
     Dosage: ONE DROP OF THE PRODUCT ON THE EYELID
     Dates: start: 2012

REACTIONS (5)
  - Eye pruritus [Unknown]
  - Off label use [Unknown]
  - Wrong technique in drug usage process [Unknown]
  - Inappropriate schedule of drug administration [Unknown]
  - Drug dose omission [Unknown]
